FAERS Safety Report 5984592-7 (Version None)
Quarter: 2008Q4

REPORT INFORMATION
  Report Type: 
  Country: None (occurrence: None)
  Receive Date: 20081208
  Receipt Date: 20080807
  Transmission Date: 20090506
  Serious: No
  Sender: FDA-Public Use
  Company Number: US-AMGEN-KDL300212

PATIENT
  Sex: Female

DRUGS (3)
  1. ENBREL [Suspect]
     Indication: RHEUMATOID ARTHRITIS
     Route: 058
     Dates: start: 20080508
  2. ENBREL [Suspect]
     Indication: ANKYLOSING SPONDYLITIS
  3. ESTROGEN NOS [Concomitant]

REACTIONS (7)
  - ABDOMINAL DISCOMFORT [None]
  - ARTHRALGIA [None]
  - BACK PAIN [None]
  - DRUG INEFFECTIVE [None]
  - GAIT DISTURBANCE [None]
  - NIGHT SWEATS [None]
  - SINUSITIS [None]
